FAERS Safety Report 9440508 (Version 1)
Quarter: 2013Q3

REPORT INFORMATION
  Report Type: Spontaneous
  Country: CA (occurrence: CA)
  Receive Date: 20130805
  Receipt Date: 20130805
  Transmission Date: 20140515
  Serious: Yes (Other)
  Sender: FDA-Public Use
  Company Number: CA-TEVA-423272USA

PATIENT
  Age: 58 Year
  Sex: Female

DRUGS (6)
  1. FLUCONAZOLE [Suspect]
     Route: 048
  2. CALCIUM [Concomitant]
     Route: 065
  3. FISH OIL [Concomitant]
     Route: 065
  4. MAGNESIUM [Concomitant]
     Route: 065
  5. MULTIVITAMIN [Concomitant]
     Route: 065
  6. VITAMIN D [Concomitant]
     Route: 065

REACTIONS (3)
  - Cardiac flutter [Recovered/Resolved]
  - Feeling abnormal [Recovered/Resolved]
  - Muscle twitching [Recovered/Resolved]
